FAERS Safety Report 5073920-5 (Version None)
Quarter: 2006Q3

REPORT INFORMATION
  Report Type: 
  Country: None (occurrence: None)
  Receive Date: 20060808
  Receipt Date: 20050608
  Transmission Date: 20061208
  Serious: No
  Sender: FDA-Public Use
  Company Number: US-AMGEN-US137704

PATIENT
  Age: 65 Year
  Sex: Female

DRUGS (1)
  1. EPOGEN [Suspect]
     Indication: RENAL FAILURE CHRONIC
     Dates: start: 20050501, end: 20050501

REACTIONS (3)
  - HYPERSENSITIVITY [None]
  - RASH GENERALISED [None]
  - SWELLING FACE [None]
